FAERS Safety Report 6806938-X (Version None)
Quarter: 2010Q2

REPORT INFORMATION
  Report Type: 
  Country: None (occurrence: None)
  Receive Date: 20100629
  Receipt Date: 20080522
  Transmission Date: 20101027
  Serious: Yes (Other)
  Sender: FDA-Public Use
  Company Number: US-PFIZER INC-2008044451

PATIENT
  Sex: Male

DRUGS (1)
  1. CARDURA [Suspect]
     Indication: URINARY TRACT DISORDER
     Dates: start: 20060101

REACTIONS (1)
  - SEXUAL DYSFUNCTION [None]
